FAERS Safety Report 10207175 (Version 1)
Quarter: 2014Q2

REPORT INFORMATION
  Report Type: Spontaneous
  Country: US (occurrence: US)
  Receive Date: 20140530
  Receipt Date: 20140530
  Transmission Date: 20141212
  Serious: No
  Sender: FDA-Public Use
  Company Number: US-GLAXOSMITHKLINE-A1022341A

PATIENT
  Age: 65 Year
  Sex: Female

DRUGS (11)
  1. VENTOLIN [Suspect]
     Indication: CHRONIC OBSTRUCTIVE PULMONARY DISEASE
     Dosage: 2SPR AS REQUIRED
     Route: 055
     Dates: start: 2009
  2. SYMBICORT [Concomitant]
  3. DALIRESP [Concomitant]
  4. GABAPENTIN [Concomitant]
  5. TRAMADOL [Concomitant]
  6. LEVOTHYROXINE [Concomitant]
  7. CITALOPRAM [Concomitant]
  8. DIAZEPAM [Concomitant]
  9. MIRTAZAPINE [Concomitant]
  10. ALENDRONATE [Concomitant]
  11. LORATADINE [Concomitant]

REACTIONS (3)
  - Dyspnoea [Not Recovered/Not Resolved]
  - Drug ineffective [Unknown]
  - Product quality issue [Unknown]
